FAERS Safety Report 20962750 (Version 1)
Quarter: 2022Q2

REPORT INFORMATION
  Report Type: Spontaneous
  Country: US (occurrence: US)
  Receive Date: 20220615
  Receipt Date: 20220615
  Transmission Date: 20220721
  Serious: No
  Sender: FDA-Public Use
  Company Number: US-BTGSP-US-BTGSP-21-0138

PATIENT
  Sex: Female

DRUGS (3)
  1. VORAXAZE [Suspect]
     Active Substance: GLUCARPIDASE
     Indication: Toxicity to various agents
     Dosage: UNK
     Route: 065
  2. VORAXAZE [Suspect]
     Active Substance: GLUCARPIDASE
     Dosage: 1 VIAL
     Route: 065
  3. METHOTREXATE [Concomitant]
     Active Substance: METHOTREXATE
     Indication: Osteosarcoma
     Dosage: UNK
     Route: 065

REACTIONS (2)
  - Off label use [Unknown]
  - Laboratory test interference [Unknown]
